FAERS Safety Report 5169028-0 (Version None)
Quarter: 2006Q4

REPORT INFORMATION
  Report Type: 
  Country: None (occurrence: None)
  Receive Date: 20061201
  Receipt Date: 20061116
  Transmission Date: 20070319
  Serious: No
  Sender: FDA-Public Use
  Company Number: 061116-0001031

PATIENT
  Age: 0 Year
  Sex: Male

DRUGS (5)
  1. NEOPROFEN [Suspect]
     Indication: PATENT DUCTUS ARTERIOSUS
     Dosage: IV
     Route: 042
  2. DOPAMINE [Concomitant]
  3. DOBUTAMINE HCL [Concomitant]
  4. HYDROCORTISONE [Concomitant]
  5. LUNG SURFACTANTS [Concomitant]

REACTIONS (1)
  - GASTROINTESTINAL PERFORATION [None]
